FAERS Safety Report 9381638 (Version 4)
Quarter: 2013Q4

REPORT INFORMATION
  Report Type: Spontaneous
  Country: FR (occurrence: FR)
  Receive Date: 20130703
  Receipt Date: 20131121
  Transmission Date: 20140711
  Serious: Yes (Death, Other)
  Sender: FDA-Public Use
  Company Number: FR-PFIZER INC-2013195230

PATIENT
  Age: 64 Year
  Sex: Male

DRUGS (21)
  1. ARTOTEC [Suspect]
     Indication: PAIN
     Dosage: 75 MG, 1X/DAY
     Dates: start: 20060914
  2. ARTOTEC [Suspect]
     Dosage: 50 MG, 1X/DAY
     Dates: start: 20100201
  3. NOVATREX [Suspect]
     Indication: RHEUMATOID ARTHRITIS
     Dosage: 4 DF, WEEKLY
     Dates: start: 200210
  4. NOVATREX [Suspect]
     Dosage: 5 DF, WEEKLY
     Dates: start: 2003
  5. NOVATREX [Suspect]
     Dosage: 10 MG, WEEKLY
     Dates: start: 20080320
  6. NOVATREX [Suspect]
     Dosage: 5 MG, WEEKLY
     Dates: start: 20100201
  7. SIMVASTATIN MYLAN [Suspect]
     Dosage: 20 MG, DAILY
     Dates: start: 20091020
  8. TENSTATEN [Suspect]
     Indication: HYPERTENSION
     Dosage: 1 DF, DAILY
     Dates: start: 20080926
  9. SPECIAFOLDINE [Suspect]
     Dosage: 2 DF, WEEKLY
  10. SPECIAFOLDINE [Suspect]
     Dosage: 3 DF, WEEKLY
     Dates: start: 2003
  11. SPECIAFOLDINE [Suspect]
     Dosage: 10 MG, WEEKLY
     Dates: start: 20080320
  12. SPECIAFOLDINE [Suspect]
     Dosage: 5 MG, WEEKLY
  13. DAFALGAN [Suspect]
     Indication: PAIN
     Dosage: 4 DF, DAILY
     Dates: start: 2010
  14. DAFALGAN [Suspect]
     Dosage: 2 TO 3 G DAILY
  15. DAFALGAN [Suspect]
     Dosage: 1000 MG, 3X/DAY
  16. VOLTARENE [Suspect]
     Indication: PAIN
     Dosage: UNK
     Route: 061
     Dates: start: 20090408
  17. ALODONT [Suspect]
     Dosage: UNK
     Route: 002
  18. LYSOPAINE [Suspect]
     Indication: DYSPHAGIA
     Dosage: UNK
     Dates: start: 20120805
  19. LYSOPAINE [Suspect]
     Indication: OROPHARYNGEAL PAIN
  20. FENOFIBRATE [Concomitant]
     Indication: HYPERCHOLESTEROLAEMIA
  21. FENOFIBRATE [Concomitant]
     Indication: HYPERTRIGLYCERIDAEMIA

REACTIONS (7)
  - Angioedema [Fatal]
  - Cardio-respiratory arrest [Fatal]
  - Ventricular tachycardia [Fatal]
  - Haematemesis [Unknown]
  - Nausea [Unknown]
  - Productive cough [Unknown]
  - Malaise [Unknown]
